FAERS Safety Report 5159690-0 (Version None)
Quarter: 2006Q4

REPORT INFORMATION
  Report Type: 
  Country: None (occurrence: None)
  Receive Date: 20061129
  Receipt Date: 20061120
  Transmission Date: 20070319
  Serious: Yes (Life-Threatening, Hospitalization, Other)
  Sender: FDA-Public Use
  Company Number: FR-JNJFOC-20061105415

PATIENT
  Age: 26 Year
  Sex: Female

DRUGS (2)
  1. TOPALGIC [Suspect]
     Indication: DRUG USE FOR UNKNOWN INDICATION
     Route: 065
  2. CLONAZEPAM [Suspect]
     Indication: DRUG USE FOR UNKNOWN INDICATION
     Route: 065

REACTIONS (8)
  - CARDIO-RESPIRATORY ARREST [None]
  - COMA [None]
  - DYSPNOEA [None]
  - HYPOTENSION [None]
  - LARYNGEAL OEDEMA [None]
  - LEUKOENCEPHALOPATHY [None]
  - MULTI-ORGAN FAILURE [None]
  - TACHYCARDIA [None]
